FAERS Safety Report 4741765-9 (Version None)
Quarter: 2005Q3

REPORT INFORMATION
  Report Type: 
  Country: None (occurrence: None)
  Receive Date: 20050801
  Receipt Date: 20050624
  Transmission Date: 20060218
  Serious: No
  Sender: FDA-Public Use
  Company Number: 2005PV000118

PATIENT
  Age: 59 Year
  Sex: Female
  Weight: 89.8122 kg

DRUGS (16)
  1. BYETTA [Suspect]
     Dosage: 5 UG; BID; SC
     Route: 058
     Dates: start: 20050607
  2. AMARYL [Concomitant]
  3. GLUCOPHAGE [Concomitant]
  4. ACTOS [Concomitant]
  5. CINNAMON [Concomitant]
  6. ASPIRIN [Concomitant]
  7. SYNTHROID [Concomitant]
  8. AVAPRO [Concomitant]
  9. MAGOX [Concomitant]
  10. VYTORIN [Concomitant]
  11. MULTI-VITAMINS [Concomitant]
  12. FISH OIL [Concomitant]
  13. FOLIC ACID [Concomitant]
  14. COENZYME Q10 [Concomitant]
  15. GLUCOSAMINE [Concomitant]
  16. CHROMIUM [Concomitant]

REACTIONS (5)
  - BLOOD GLUCOSE INCREASED [None]
  - INJECTION SITE DISCOLOURATION [None]
  - NAUSEA [None]
  - RETCHING [None]
  - WEIGHT DECREASED [None]
